FAERS Safety Report 25390589 (Version 1)
Quarter: 2025Q2

REPORT INFORMATION
  Report Type: Spontaneous
  Country: US (occurrence: US)
  Receive Date: 20250603
  Receipt Date: 20250603
  Transmission Date: 20250716
  Serious: No
  Sender: PFIZER
  Company Number: US-PFIZER INC-202500113616

PATIENT
  Age: 68 Year
  Sex: Female

DRUGS (13)
  1. XELJANZ XR [Suspect]
     Active Substance: TOFACITINIB CITRATE
  2. AZELAIC ACID [Concomitant]
     Active Substance: AZELAIC ACID
  3. CALCIUM [Concomitant]
     Active Substance: CALCIUM
  4. CYCLOSPORINE [Concomitant]
     Active Substance: CYCLOSPORINE
  5. ESTRACE [Concomitant]
     Active Substance: ESTRADIOL
  6. FOLIC ACID [Concomitant]
     Active Substance: FOLIC ACID
  7. LINZESS [Concomitant]
     Active Substance: LINACLOTIDE
  8. METHOTREXATE [Concomitant]
     Active Substance: METHOTREXATE
  9. CETRIMONIUM BROMIDE [Concomitant]
     Active Substance: CETRIMONIUM BROMIDE
  10. OMEPRAZOLE [Concomitant]
     Active Substance: OMEPRAZOLE
  11. OXYMETAZOLINE [Concomitant]
     Active Substance: OXYMETAZOLINE
  12. CRESTOR [Concomitant]
     Active Substance: ROSUVASTATIN CALCIUM
  13. KENALOG [Concomitant]
     Active Substance: TRIAMCINOLONE ACETONIDE

REACTIONS (1)
  - Sinusitis [Unknown]
